FAERS Safety Report 25515011 (Version 1)
Quarter: 2025Q3

REPORT INFORMATION
  Report Type: Spontaneous
  Country: US (occurrence: US)
  Receive Date: 20250703
  Receipt Date: 20250703
  Transmission Date: 20251021
  Serious: No
  Sender: RADIUS PHARM
  Company Number: US-RADIUS HEALTH INC.-US-RADIUS-25047715

PATIENT
  Sex: Female
  Weight: 76.644 kg

DRUGS (3)
  1. TYMLOS [Suspect]
     Active Substance: ABALOPARATIDE
     Indication: Bone density abnormal
     Dosage: 80 MICROGRAM, QD
     Route: 058
     Dates: start: 202412
  2. VITAMINS NOS [Concomitant]
     Active Substance: VITAMINS
     Indication: Product used for unknown indication
  3. VITAMIN D3 [Concomitant]
     Active Substance: CHOLECALCIFEROL
     Indication: Product used for unknown indication

REACTIONS (7)
  - Nausea [Unknown]
  - Ophthalmic migraine [Unknown]
  - Bone pain [Unknown]
  - Arthralgia [Unknown]
  - Pain in extremity [Unknown]
  - Dizziness [Unknown]
  - Palpitations [Unknown]
